FAERS Safety Report 23056320 (Version 4)
Quarter: 2023Q4

REPORT INFORMATION
  Report Type: Report from Study
  Country: BR (occurrence: BR)
  Receive Date: 20231011
  Receipt Date: 20231218
  Transmission Date: 20240110
  Serious: Yes (Hospitalization, Other)
  Sender: FDA-Public Use
  Company Number: BR-002147023-NVSC2023BR169670

PATIENT

DRUGS (3)
  1. RUXOLITINIB [Suspect]
     Active Substance: RUXOLITINIB
     Indication: Myelofibrosis
     Dosage: 40 MG, QD (2 20 MG TABLETS PER DAY, 2 DOSES)
     Route: 065
     Dates: start: 20230605
  2. RUXOLITINIB [Suspect]
     Active Substance: RUXOLITINIB
     Dosage: UNK, (NOW HE INFORMED THAT HE  TAKES TWO  TABLETS ON  EVEN DAYS  AND ONE ON  ODD DAYS)
     Route: 048
  3. HYDROXYUREA [Concomitant]
     Active Substance: HYDROXYUREA
     Indication: Product used for unknown indication
     Dosage: UNK
     Route: 065

REACTIONS (17)
  - Platelet count abnormal [Recovered/Resolved]
  - Haemoglobin abnormal [Not Recovered/Not Resolved]
  - Anaemia [Recovered/Resolved]
  - Anaemia [Not Recovered/Not Resolved]
  - Anxiety [Unknown]
  - Platelet count decreased [Unknown]
  - Diarrhoea [Unknown]
  - Insomnia [Unknown]
  - Nausea [Unknown]
  - Panic attack [Unknown]
  - Renal disorder [Unknown]
  - Somnolence [Not Recovered/Not Resolved]
  - Tachycardia [Unknown]
  - Anaemia [Unknown]
  - Platelet count abnormal [Unknown]
  - Fatigue [Not Recovered/Not Resolved]
  - Tremor [Unknown]

NARRATIVE: CASE EVENT DATE: 20230101
